FAERS Safety Report 9143518 (Version 1)
Quarter: 2013Q1

REPORT INFORMATION
  Report Type: Spontaneous
  Country: US (occurrence: US)
  Receive Date: 20130306
  Receipt Date: 20130306
  Transmission Date: 20140127
  Serious: Yes (Death, Other)
  Sender: FDA-Public Use
  Company Number: US-PFIZER INC-2013076877

PATIENT
  Age: 70 Year
  Sex: Male
  Weight: 85.7 kg

DRUGS (5)
  1. DILANTIN [Suspect]
     Indication: CONVULSION
     Dosage: 100 MG, 3X/DAY
     Dates: start: 1993
  2. NEURONTIN [Suspect]
     Indication: PAIN IN EXTREMITY
     Dosage: 100 MG, 3X/DAY
  3. LIPITOR [Suspect]
     Indication: BLOOD CHOLESTEROL INCREASED
     Dosage: UNK
     Dates: end: 201209
  4. GLUCOTROL [Suspect]
     Dosage: UNK
  5. PLAVIX [Suspect]
     Dosage: UNK

REACTIONS (2)
  - Myocardial infarction [Fatal]
  - Chest pain [Not Recovered/Not Resolved]
